FAERS Safety Report 24589885 (Version 1)
Quarter: 2024Q4

REPORT INFORMATION
  Report Type: Spontaneous
  Country: CN (occurrence: CN)
  Receive Date: 20241107
  Receipt Date: 20241107
  Transmission Date: 20250115
  Serious: Yes (Other)
  Sender: BAYER HEALTHCARE PHARMACEUTICALS INC.
  Company Number: CN-BAYER-2024A158963

PATIENT
  Age: 67 Year
  Sex: Female
  Weight: 52 kg

DRUGS (2)
  1. ULTRAVIST [Suspect]
     Active Substance: IOPROMIDE
     Indication: Angiocardiogram
     Dosage: 100 ML, ONCE, ST
     Route: 042
     Dates: start: 20241023, end: 20241023
  2. ULTRAVIST [Suspect]
     Active Substance: IOPROMIDE
     Indication: Chest discomfort

REACTIONS (6)
  - Delirium [Recovering/Resolving]
  - Heart rate increased [None]
  - Pruritus [Recovering/Resolving]
  - Erythema [Recovering/Resolving]
  - Skin swelling [Recovering/Resolving]
  - Blood pressure systolic increased [None]

NARRATIVE: CASE EVENT DATE: 20241023
